FAERS Safety Report 4589721-8 (Version None)
Quarter: 2005Q1

REPORT INFORMATION
  Report Type: 
  Country: None (occurrence: None)
  Receive Date: 20050223
  Receipt Date: 20050211
  Transmission Date: 20050727
  Serious: Yes (Hospitalization, Other)
  Sender: FDA-Public Use
  Company Number: US-JNJFOC-20040908356

PATIENT
  Age: 31 Year
  Sex: Female
  Weight: 53.52 kg

DRUGS (1)
  1. ORTHO EVRA [Suspect]
     Indication: CONTRACEPTION
     Route: 062
     Dates: start: 20030201, end: 20040201

REACTIONS (2)
  - AFFECT LABILITY [None]
  - APPENDICECTOMY [None]
